FAERS Safety Report 6295451-7 (Version None)
Quarter: 2009Q3

REPORT INFORMATION
  Report Type: 
  Country: None (occurrence: None)
  Receive Date: 20090730
  Receipt Date: 20090724
  Transmission Date: 20100115
  Serious: Yes (Hospitalization)
  Sender: FDA-Public Use
  Company Number: 2009-201166-NL

PATIENT
  Age: 82 Year
  Sex: Female

DRUGS (9)
  1. MIRTAZAPINE [Suspect]
     Dosage: DF/15 MG/ML TID
  2. CYAMEMAZINE [Suspect]
     Dosage: GTT
  3. RAMIPRIL [Suspect]
     Dosage: 1.25 MG BID
  4. ACETYLSALICYLATE LYSINE [Suspect]
     Dosage: 160 MG QD
  5. GLYCERYL TRINITRATE [Suspect]
     Dosage: 5 MG, TRANSDERMAL
     Route: 062
  6. METOPROLOL TARTRATE [Suspect]
     Dosage: 100 MG
  7. POTASSIUM CHLORIDE [Concomitant]
  8. NULYTELY [Concomitant]
  9. SPASFON [Concomitant]

REACTIONS (6)
  - BODY TEMPERATURE INCREASED [None]
  - CARDIAC FAILURE [None]
  - CARDIAC MURMUR [None]
  - CHOLESTASIS [None]
  - DEEP VEIN THROMBOSIS [None]
  - TACHYCARDIA [None]
